FAERS Safety Report 23150068 (Version 1)
Quarter: 2023Q4

REPORT INFORMATION
  Report Type: Spontaneous
  Country: JP (occurrence: JP)
  Receive Date: 20231106
  Receipt Date: 20231106
  Transmission Date: 20240110
  Serious: Yes (Hospitalization)
  Sender: FDA-Public Use
  Company Number: JP-SCALL-2023-JP-074228

PATIENT
  Age: 83 Year
  Sex: Male

DRUGS (1)
  1. DUTASTERIDE [Suspect]
     Active Substance: DUTASTERIDE
     Dosage: QD
     Route: 065

REACTIONS (2)
  - Hospitalisation [Unknown]
  - Product dose omission in error [Unknown]
